FAERS Safety Report 23051076 (Version 1)
Quarter: 2023Q4

REPORT INFORMATION
  Report Type: Spontaneous
  Country: UA (occurrence: UA)
  Receive Date: 20231010
  Receipt Date: 20231010
  Transmission Date: 20240109
  Serious: Yes (Life-Threatening, Hospitalization)
  Sender: FDA-Public Use
  Company Number: UA-ANIPHARMA-2023-UA-000006

PATIENT
  Sex: Male

DRUGS (1)
  1. CASODEX [Suspect]
     Active Substance: BICALUTAMIDE
     Indication: Prostate cancer
     Dosage: 50 MG DAILY
     Route: 048
     Dates: end: 20231001

REACTIONS (5)
  - Pneumonia [Unknown]
  - Overdose [Unknown]
  - Body temperature increased [Recovering/Resolving]
  - Pain in extremity [Recovering/Resolving]
  - Blood urine present [Recovering/Resolving]

NARRATIVE: CASE EVENT DATE: 20231001
